FAERS Safety Report 25316800 (Version 1)
Quarter: 2025Q2

REPORT INFORMATION
  Report Type: Spontaneous
  Country: US (occurrence: US)
  Receive Date: 20250515
  Receipt Date: 20250515
  Transmission Date: 20250717
  Serious: Yes (Life-Threatening, Hospitalization)
  Sender: DR REDDYS
  Company Number: None

PATIENT
  Age: 69 Year
  Sex: Male

DRUGS (3)
  1. DOXYCYCLINE [Suspect]
     Active Substance: DOXYCYCLINE
     Indication: Pneumonia
  2. WARFARIN [Suspect]
     Active Substance: WARFARIN
     Indication: Atrial fibrillation
  3. WARFARIN [Suspect]
     Active Substance: WARFARIN

REACTIONS (4)
  - Abdominal wall haematoma [Recovering/Resolving]
  - Pelvic haematoma [Recovering/Resolving]
  - Drug interaction [Recovering/Resolving]
  - Atrial fibrillation [Recovering/Resolving]
